FAERS Safety Report 5342174-4 (Version None)
Quarter: 2007Q2

REPORT INFORMATION
  Report Type: 
  Country: None (occurrence: None)
  Receive Date: 20070601
  Receipt Date: 20070524
  Transmission Date: 20071010
  Serious: Yes (Hospitalization, Other)
  Sender: FDA-Public Use
  Company Number: B0468973A

PATIENT
  Age: 53 Year
  Sex: Female
  Weight: 70 kg

DRUGS (1)
  1. ZYBAN [Suspect]
     Route: 048
     Dates: start: 20070222, end: 20070227

REACTIONS (9)
  - AURICULAR SWELLING [None]
  - BLISTER [None]
  - DRUG ADMINISTRATION ERROR [None]
  - DRUG INEFFECTIVE [None]
  - ERYTHEMA MULTIFORME [None]
  - EYELID DISORDER [None]
  - LIP SWELLING [None]
  - MALAISE [None]
  - TOXIC SHOCK SYNDROME [None]
